FAERS Safety Report 8151343-X (Version None)
Quarter: 2012Q1

REPORT INFORMATION
  Report Type: 
  Country: None (occurrence: None)
  Receive Date: 20120220
  Receipt Date: 20120209
  Transmission Date: 20120608
  Serious: Yes (Other)
  Sender: FDA-Public Use
  Company Number: AU-ASTRAZENECA-2012SE09447

PATIENT
  Age: 2 Year

DRUGS (1)
  1. ATACAND [Suspect]
     Route: 064

REACTIONS (3)
  - RENAL IMPAIRMENT [None]
  - SPEECH DISORDER [None]
  - DEVELOPMENTAL DELAY [None]
